FAERS Safety Report 4507722-2 (Version None)
Quarter: 2004Q4

REPORT INFORMATION
  Report Type: 
  Country: None (occurrence: None)
  Receive Date: 20041015
  Receipt Date: 20031104
  Transmission Date: 20050328
  Serious: Yes (Life-Threatening, Hospitalization, Other)
  Sender: FDA-Public Use
  Company Number: 2003116563

PATIENT
  Age: 28 Year
  Sex: Female

DRUGS (8)
  1. NEURONTIN [Suspect]
     Indication: MOOD SWINGS
     Dosage: 2400 MG (TID), ORAL
     Route: 048
     Dates: start: 20020101
  2. BUPROPION HYDROCHLORIDE [Suspect]
     Indication: ILL-DEFINED DISORDER
     Dates: start: 20031102, end: 20031103
  3. BACLOFEN [Concomitant]
  4. VICODIN [Concomitant]
  5. ZOLPIDEM TARTRATE [Concomitant]
  6. CLONAZEPAM [Concomitant]
  7. FLUOXETINE HYDROCHLORIDE [Concomitant]
  8. QUEITAPINE FUMARATE (QUETIAPINE FUMARATE) [Concomitant]

REACTIONS (6)
  - DYSTONIA [None]
  - EYE DISORDER [None]
  - INTENTIONAL OVERDOSE [None]
  - MEDICATION ERROR [None]
  - MUSCLE TWITCHING [None]
  - SUICIDE ATTEMPT [None]
